FAERS Safety Report 8325614-8 (Version None)
Quarter: 2012Q2

REPORT INFORMATION
  Report Type: 
  Country: None (occurrence: None)
  Receive Date: 20120501
  Receipt Date: 20100514
  Transmission Date: 20120825
  Serious: No
  Sender: FDA-Public Use
  Company Number: US-TEVA-2010002745

PATIENT
  Age: 50 Year
  Sex: Male
  Weight: 113.95 kg

DRUGS (3)
  1. NUVIGIL [Suspect]
     Indication: SLEEP APNOEA SYNDROME
     Dosage: 150 MILLIGRAM;
     Route: 048
     Dates: start: 20100409, end: 20100401
  2. PRILOSEC [Concomitant]
  3. NUVIGIL [Suspect]
     Dosage: 250 MILLIGRAM;
     Route: 048
     Dates: start: 20100401, end: 20100101

REACTIONS (2)
  - DYSPNOEA [None]
  - CHEST DISCOMFORT [None]
